FAERS Safety Report 21417751 (Version 1)
Quarter: 2022Q4

REPORT INFORMATION
  Report Type: Spontaneous
  Country: FR (occurrence: FR)
  Receive Date: 20221006
  Receipt Date: 20221006
  Transmission Date: 20230113
  Serious: Yes (Other)
  Sender: FDA-Public Use
  Company Number: None

PATIENT
  Age: 51 Year
  Sex: Male
  Weight: 85 kg

DRUGS (2)
  1. INLYTA [Suspect]
     Active Substance: AXITINIB
     Indication: Renal cancer
     Dosage: 5 MG, 2X/DAY (MORNING AND EVENING)
     Route: 048
     Dates: start: 202202, end: 20220830
  2. KEYTRUDA [Suspect]
     Active Substance: PEMBROLIZUMAB
     Indication: Renal cancer
     Dosage: 1 DF, EVERY 3 WEEKS
     Route: 042
     Dates: start: 202202

REACTIONS (1)
  - Immune-mediated thyroiditis [Not Recovered/Not Resolved]

NARRATIVE: CASE EVENT DATE: 20220901
